FAERS Safety Report 7202273-9 (Version None)
Quarter: 2010Q4

REPORT INFORMATION
  Report Type: 
  Country: None (occurrence: None)
  Receive Date: 20101229
  Receipt Date: 20101220
  Transmission Date: 20110411
  Serious: Yes (Other)
  Sender: FDA-Public Use
  Company Number: ES-B.I. PHARMACEUTICALS,INC./RIDGEFIELD-2010-ES-00269ES

PATIENT
  Age: 90 Year
  Sex: Male

DRUGS (7)
  1. UROLOSIN OCAS [Suspect]
     Route: 048
     Dates: start: 20080220
  2. AMILORIDE HCL AND HYDROCHLOROTHIAZIDE [Suspect]
     Route: 048
     Dates: start: 20090415
  3. AUXINA A MASIVA [Suspect]
     Route: 048
     Dates: start: 20100408
  4. AVIDART [Suspect]
     Route: 048
     Dates: start: 20081103
  5. QUINAPRIL NORMON [Suspect]
     Route: 048
     Dates: start: 20080111
  6. SINTROM [Suspect]
     Route: 048
     Dates: start: 20090513
  7. TRANGOREX [Suspect]
     Route: 048
     Dates: start: 20080220

REACTIONS (1)
  - RETINOPATHY [None]
